FAERS Safety Report 11555098 (Version 1)
Quarter: 2015Q3

REPORT INFORMATION
  Report Type: Spontaneous
  Country: US (occurrence: US)
  Receive Date: 20150903
  Receipt Date: 20150903
  Transmission Date: 20151125
  Serious: No
  Sender: FDA-Public Use
  Company Number: US-ELI_LILLY_AND_COMPANY-US201010001832

PATIENT
  Sex: Female

DRUGS (7)
  1. HUMALOG [Suspect]
     Active Substance: INSULIN LISPRO
     Indication: DIABETES MELLITUS
     Dosage: 54 U, DAILY (1/D)
  2. ACIDOPHILUS [Concomitant]
     Active Substance: LACTOBACILLUS ACIDOPHILUS
  3. LANTUS [Concomitant]
     Active Substance: INSULIN GLARGINE
  4. NOVOLIN [Concomitant]
     Active Substance: INSULIN HUMAN
     Dosage: UNK, UNK
     Dates: start: 201007
  5. HUMALOG [Suspect]
     Active Substance: INSULIN LISPRO
     Dosage: 100 U, DAILY (1/D)
  6. ZYVOX [Concomitant]
     Active Substance: LINEZOLID
     Dosage: 600 MG, 2/D
  7. VANCOMYCIN [Concomitant]
     Active Substance: VANCOMYCIN
     Route: 042

REACTIONS (6)
  - Blood glucose decreased [Unknown]
  - Agitation [Unknown]
  - Irritability [Unknown]
  - Fear [Unknown]
  - Nervousness [Unknown]
  - Alopecia [Unknown]
